FAERS Safety Report 9207513 (Version 2)
Quarter: 2013Q2

REPORT INFORMATION
  Report Type: Spontaneous
  Country: US (occurrence: US)
  Receive Date: 20130403
  Receipt Date: 20130506
  Transmission Date: 20140414
  Serious: Yes (Life-Threatening, Hospitalization, Other)
  Sender: FDA-Public Use
  Company Number: US-ASTRAZENECA-2013SE21342

PATIENT
  Age: 60 Year
  Sex: Female

DRUGS (5)
  1. CRESTOR [Suspect]
     Route: 048
  2. LIPITOR [Suspect]
     Dosage: DAILY AT NIGHT
     Route: 065
  3. LIPITOR [Suspect]
     Dosage: UNKNOWN MANUFACTURER
     Route: 065
  4. GEMFIBROZIL [Suspect]
     Route: 065
  5. SEDATIVE MEDICATION [Suspect]
     Route: 065

REACTIONS (17)
  - Neuropathy peripheral [Unknown]
  - Coma [Unknown]
  - Bipolar disorder [Unknown]
  - Mental disorder [Unknown]
  - Sedation [Unknown]
  - Chest pain [Unknown]
  - Cholelithiasis [Unknown]
  - Back pain [Unknown]
  - Activities of daily living impaired [Unknown]
  - Weight decreased [Unknown]
  - Mobility decreased [Unknown]
  - Muscle disorder [Unknown]
  - Blood cholesterol increased [Unknown]
  - High density lipoprotein decreased [Unknown]
  - Muscle spasms [Unknown]
  - Blood triglycerides increased [Unknown]
  - Intentional drug misuse [Unknown]
